FAERS Safety Report 7255914-4 (Version None)
Quarter: 2011Q1

REPORT INFORMATION
  Report Type: 
  Country: None (occurrence: None)
  Receive Date: 20110129
  Receipt Date: 20100505
  Transmission Date: 20110831
  Serious: No
  Sender: FDA-Public Use
  Company Number: US-ABBOTT-10P-163-0643132-00

PATIENT
  Sex: Male

DRUGS (2)
  1. DAILY VITAMINS [Concomitant]
     Indication: PRODUCT USED FOR UNKNOWN INDICATION
  2. HUMIRA [Suspect]
     Indication: PSORIASIS
     Dates: start: 20100105

REACTIONS (5)
  - LOWER RESPIRATORY TRACT INFECTION [None]
  - HEADACHE [None]
  - RHINORRHOEA [None]
  - OROPHARYNGEAL PAIN [None]
  - PYREXIA [None]
